FAERS Safety Report 9280822 (Version 2)
Quarter: 2013Q3

REPORT INFORMATION
  Report Type: Report from Study
  Country: JP (occurrence: JP)
  Receive Date: 20130509
  Receipt Date: 20130723
  Transmission Date: 20140515
  Serious: Yes (Death, Hospitalization)
  Sender: FDA-Public Use
  Company Number: JP-AMGEN-JPNCT2013032473

PATIENT
  Age: 87 Year
  Sex: Female
  Weight: 40 kg

DRUGS (21)
  1. DARBEPOETIN ALFA [Suspect]
     Indication: NEPHROGENIC ANAEMIA
     Dosage: 60 MUG, QD
     Route: 058
     Dates: start: 20110526, end: 20110526
  2. DARBEPOETIN ALFA [Suspect]
     Dosage: 120 MUG, QD
     Route: 058
     Dates: start: 20110623, end: 20110623
  3. DARBEPOETIN ALFA [Suspect]
     Dosage: 30 MUG, QD
     Route: 058
     Dates: start: 20110721, end: 20110721
  4. DARBEPOETIN ALFA [Suspect]
     Dosage: 60 MUG, QD
     Route: 058
     Dates: start: 20110908, end: 20110908
  5. DARBEPOETIN ALFA [Suspect]
     Dosage: 120 MUG, Q4WK
     Route: 058
     Dates: start: 20111013, end: 20111110
  6. DARBEPOETIN ALFA [Suspect]
     Dosage: 180 MUG, QD
     Route: 058
     Dates: start: 20111208, end: 20111208
  7. DARBEPOETIN ALFA [Suspect]
     Dosage: 180 MUG, QD
     Route: 058
     Dates: start: 20120105, end: 20120105
  8. DARBEPOETIN ALFA [Suspect]
     Dosage: 180 MUG, QD
     Route: 058
     Dates: start: 20120209, end: 20120209
  9. DARBEPOETIN ALFA [Suspect]
     Dosage: 180 MUG, QD
     Route: 058
     Dates: start: 20120223, end: 20120223
  10. SIGMART [Concomitant]
     Dosage: UNK
     Route: 048
  11. PLAVIX [Concomitant]
     Dosage: UNK
     Route: 048
  12. MEVALOTIN [Concomitant]
     Dosage: UNK
     Route: 048
  13. LASIX [Concomitant]
     Indication: CARDIAC FAILURE
     Dosage: UNK
     Route: 048
  14. EPADEL [Concomitant]
     Dosage: UNK
     Route: 048
  15. AMLODIPINE BESILATE [Concomitant]
     Dosage: UNK
     Route: 048
  16. FRANDOL [Concomitant]
     Dosage: UNK
     Route: 062
  17. ARGAMATE [Concomitant]
     Dosage: UNK
     Route: 048
  18. FERROMIA [Concomitant]
     Dosage: UNK
     Route: 048
  19. BONALON [Concomitant]
     Dosage: UNK
     Route: 048
  20. ATELEC [Concomitant]
     Dosage: UNK
     Route: 048
  21. SENNOSIDE [Concomitant]
     Dosage: UNK
     Route: 048

REACTIONS (2)
  - Cardiac failure [Fatal]
  - Hypertension [Recovering/Resolving]
